FAERS Safety Report 9417161 (Version 2)
Quarter: 2013Q3

REPORT INFORMATION
  Report Type: Spontaneous
  Country: CA (occurrence: None)
  Receive Date: 20130722
  Receipt Date: 20130725
  Transmission Date: 20140515
  Serious: Yes (Hospitalization)
  Sender: FDA-Public Use
  Company Number: 2013AP006761

PATIENT
  Age: 30 Year
  Sex: Female

DRUGS (8)
  1. CLINDAMYCIN [Suspect]
     Indication: MASTITIS
  2. VANCOMYCIN [Suspect]
     Indication: MASTITIS
  3. CEFTRIAXONE (CEFTRIAXONE) [Concomitant]
  4. METRONIDAZOLE (METRONIDAZOLE) [Concomitant]
  5. CEFALEXIN (CEFALEXIN) [Concomitant]
  6. PARACETAMOL (PARACETAMOL) [Concomitant]
  7. CEFAZOLIN (CEFAZOLIN) [Concomitant]
  8. PIPERACILLIN W/ TAZOBACTAM (PIPERACILLIN W/TAZOBACTAM) [Concomitant]

REACTIONS (5)
  - Drug hypersensitivity [None]
  - Red man syndrome [None]
  - Exposure during pregnancy [None]
  - Somnolence [None]
  - Maternal exposure during pregnancy [None]
